FAERS Safety Report 8540308-1 (Version None)
Quarter: 2012Q3

REPORT INFORMATION
  Report Type: 
  Country: None (occurrence: None)
  Receive Date: 20120713
  Receipt Date: 20110301
  Transmission Date: 20120928
  Serious: Yes (Other)
  Sender: FDA-Public Use
  Company Number: 2011AP000381

PATIENT
  Age: 35 Year
  Sex: Male

DRUGS (4)
  1. FLUOXETINE HCL [Concomitant]
  2. RISPERIDONE [Suspect]
     Indication: PRODUCT USED FOR UNKNOWN INDICATION
     Dosage: 4 MG, UNK, PO
     Route: 048
     Dates: start: 20101028, end: 20110221
  3. OLANZAPINE [Concomitant]
  4. CITALOPRAM HYDROBROMIDE [Concomitant]

REACTIONS (1)
  - ANAPHYLACTOID REACTION [None]
